FAERS Safety Report 10430095 (Version 1)
Quarter: 2014Q3

REPORT INFORMATION
  Report Type: Report from Study
  Country: AU (occurrence: AU)
  Receive Date: 20140904
  Receipt Date: 20140904
  Transmission Date: 20150326
  Serious: Yes (Hospitalization)
  Sender: FDA-Public Use
  Company Number: PHHY2014AU107418

PATIENT

DRUGS (1)
  1. CLOZARIL [Suspect]
     Active Substance: CLOZAPINE
     Dosage: 600 MG (150 MG IN MORNING, 100 MG IN AFTERNOON AND 350 MG IN NOCTE), DAILY

REACTIONS (2)
  - Antipsychotic drug level increased [Unknown]
  - Fall [Unknown]
